FAERS Safety Report 4402243-X (Version None)
Quarter: 2004Q3

REPORT INFORMATION
  Report Type: 
  Country: None (occurrence: None)
  Receive Date: 20040716
  Receipt Date: 20040708
  Transmission Date: 20050211
  Serious: Yes (Other)
  Sender: FDA-Public Use
  Company Number: HQWYE020213JUL04

PATIENT
  Age: 35 Year
  Sex: Male

DRUGS (3)
  1. EFFEXOR XR [Suspect]
     Dosage: 225 MG 1X PER 1 DAY ORAL
     Route: 048
     Dates: start: 20020301, end: 20040707
  2. TOPAMAX [Concomitant]
  3. ZYPREXA [Concomitant]

REACTIONS (7)
  - ARTHROPATHY [None]
  - LIVER FUNCTION TEST ABNORMAL [None]
  - OSTEOPENIA [None]
  - OSTEOPOROSIS [None]
  - RIB FRACTURE [None]
  - SNEEZING [None]
  - SPINAL DISORDER [None]
